FAERS Safety Report 5472473-7 (Version None)
Quarter: 2007Q3

REPORT INFORMATION
  Report Type: 
  Country: None (occurrence: None)
  Receive Date: 20070926
  Receipt Date: 20070917
  Transmission Date: 20080115
  Serious: Yes (Hospitalization)
  Sender: FDA-Public Use
  Company Number: GXKR2007DE08089

PATIENT
  Age: 70 Year
  Sex: Female
  Weight: 38 kg

DRUGS (11)
  1. SIMVASTATIN [Suspect]
     Indication: STENT PLACEMENT
     Dosage: 40 MG, BID, ORAL
     Route: 048
  2. AMOXICILLIN [Suspect]
     Indication: STENT PLACEMENT
     Dosage: ORAL
     Route: 048
     Dates: end: 20070826
  3. RAMIPRIL [Suspect]
     Indication: STENT PLACEMENT
     Dosage: ORAL
     Route: 048
  4. OMEP (OMEPRAZOLE) [Concomitant]
  5. NEXIUM [Concomitant]
  6. PLAVIX [Concomitant]
  7. ACETYLSALICYLIC ACID SRT [Concomitant]
  8. OPIPRAMOL (OPIPRAMOL) [Concomitant]
  9. THEOPHYLLINE [Concomitant]
  10. CLARITHROMYCIN [Concomitant]
  11. BISOPROLOL FUMARATE [Concomitant]

REACTIONS (5)
  - BLOOD CREATINE PHOSPHOKINASE INCREASED [None]
  - MOVEMENT DISORDER [None]
  - MUSCLE DISORDER [None]
  - PAIN IN EXTREMITY [None]
  - RENAL FAILURE [None]
